FAERS Safety Report 25956989 (Version 1)
Quarter: 2025Q4

REPORT INFORMATION
  Report Type: Spontaneous
  Country: CN (occurrence: CN)
  Receive Date: 20251024
  Receipt Date: 20251024
  Transmission Date: 20260117
  Serious: Yes (Life-Threatening, Hospitalization)
  Sender: COHERUS
  Company Number: CN-SHANGHAI JUNSHI BIOSCIENCES CO., LTD.-CN2025016147

PATIENT

DRUGS (4)
  1. TORIPALIMAB [Suspect]
     Active Substance: TORIPALIMAB
     Indication: Tonsil cancer
     Dosage: 240 MG
     Route: 041
     Dates: start: 20250915, end: 20250915
  2. CISPLATIN [Suspect]
     Active Substance: CISPLATIN
     Indication: Tonsil cancer
     Dosage: UNK
     Route: 065
     Dates: start: 20250910, end: 20250912
  3. FLUOROURACIL [Suspect]
     Active Substance: FLUOROURACIL
     Indication: Tonsil cancer
     Dosage: UNK
     Route: 065
     Dates: start: 20250910, end: 20250914
  4. DOCETAXEL [Suspect]
     Active Substance: DOCETAXEL
     Indication: Tonsil cancer
     Dosage: UNK
     Route: 065
     Dates: start: 20250910, end: 20250910

REACTIONS (10)
  - Dysphagia [Not Recovered/Not Resolved]
  - Muscular weakness [Not Recovered/Not Resolved]
  - Hepatic function abnormal [Recovering/Resolving]
  - Pneumonia [Not Recovered/Not Resolved]
  - Myocardial injury [Not Recovered/Not Resolved]
  - Renal impairment [Recovering/Resolving]
  - Pain [Recovering/Resolving]
  - Vision blurred [Recovering/Resolving]
  - Diplopia [Recovering/Resolving]
  - Off label use [Unknown]

NARRATIVE: CASE EVENT DATE: 20250915
